FAERS Safety Report 11146531 (Version 1)
Quarter: 2015Q2

REPORT INFORMATION
  Report Type: Spontaneous
  Country: FR (occurrence: FR)
  Receive Date: 20150528
  Receipt Date: 20150528
  Transmission Date: 20150821
  Serious: Yes (Other)
  Sender: FDA-Public Use
  Company Number: FR-MYLANLABS-2015M1017504

PATIENT

DRUGS (1)
  1. SUNITINIB [Suspect]
     Active Substance: SUNITINIB
     Indication: ANGIOSARCOMA
     Dosage: 50 MG/DAY FOR 4WK; 6WK CYCLE
     Route: 065
     Dates: start: 200611

REACTIONS (10)
  - Neutropenia [Unknown]
  - Eyelid oedema [Recovering/Resolving]
  - Cough [Recovering/Resolving]
  - Headache [Unknown]
  - Hypertension [Recovered/Resolved]
  - Gingival bleeding [Unknown]
  - Swelling face [Unknown]
  - Hypothyroidism [Recovered/Resolved]
  - Leukopenia [Unknown]
  - Asthenia [Recovering/Resolving]

NARRATIVE: CASE EVENT DATE: 200705
